FAERS Safety Report 8619303-X (Version None)
Quarter: 2012Q3

REPORT INFORMATION
  Report Type: 
  Country: None (occurrence: None)
  Receive Date: 20120824
  Receipt Date: 20120820
  Transmission Date: 20120928
  Serious: Yes (Other)
  Sender: FDA-Public Use
  Company Number: BE-ASTELLAS-2012EU003596

PATIENT
  Age: 55 Year
  Sex: Female

DRUGS (6)
  1. TACROLIMUS [Suspect]
     Indication: RENAL TRANSPLANT
     Dosage: 5 MG, BID
     Route: 065
  2. CLOTIAZEPAM [Concomitant]
     Dosage: UNK
     Route: 065
  3. BISOPROLOL FUMARATE [Concomitant]
     Dosage: UNK
     Route: 065
  4. LIPITOR [Concomitant]
     Dosage: UNK
     Route: 065
  5. MEDROL [Concomitant]
     Dosage: 8 MG, BID
     Route: 065
  6. CELLCEPT [Concomitant]
     Dosage: UNK
     Route: 065

REACTIONS (2)
  - MANIA [None]
  - CONFUSIONAL STATE [None]
